FAERS Safety Report 11699630 (Version 2)
Quarter: 2015Q4

REPORT INFORMATION
  Report Type: Spontaneous
  Country: JP (occurrence: JP)
  Receive Date: 20151105
  Receipt Date: 20151116
  Transmission Date: 20160304
  Serious: Yes (Other)
  Sender: FDA-Public Use
  Company Number: JP-ROCHE-1655744

PATIENT
  Age: 7 Year
  Sex: Female

DRUGS (4)
  1. TACROLIMUS HYDRATE [Concomitant]
     Active Substance: TACROLIMUS
     Dosage: DOSAGE IS UNCERTAIN.
     Route: 065
  2. CELLCEPT [Suspect]
     Active Substance: MYCOPHENOLATE MOFETIL\MYCOPHENOLATE MOFETIL HYDROCHLORIDE
     Indication: PRODUCT USED FOR UNKNOWN INDICATION
     Dosage: DOSAGE IS UNCERTAIN.
     Route: 048
  3. METHYLPREDNISOLONE. [Concomitant]
     Active Substance: METHYLPREDNISOLONE
     Dosage: DOSAGE IS UNCERTAIN.
     Route: 065
  4. BASILIXIMAB [Concomitant]
     Active Substance: BASILIXIMAB
     Dosage: DOSAGE IS UNCERTAIN.
     Route: 065

REACTIONS (1)
  - Posterior reversible encephalopathy syndrome [Unknown]
